FAERS Safety Report 6453367-7 (Version None)
Quarter: 2009Q4

REPORT INFORMATION
  Report Type: 
  Country: None (occurrence: None)
  Receive Date: 20091124
  Receipt Date: 20091118
  Transmission Date: 20100525
  Serious: Yes (Life-Threatening, Other)
  Sender: FDA-Public Use
  Company Number: NL-CELGENEUS-114-21880-09111361

PATIENT
  Sex: Male

DRUGS (5)
  1. REVLIMID [Suspect]
     Route: 048
     Dates: start: 20090710, end: 20090731
  2. REVLIMID [Suspect]
     Route: 048
     Dates: start: 20090825, end: 20090826
  3. NIFEDIPINE [Concomitant]
     Indication: DRUG USE FOR UNKNOWN INDICATION
     Route: 065
     Dates: end: 20090803
  4. BUMETANIDE [Concomitant]
     Indication: CARDIAC FAILURE
     Route: 065
     Dates: end: 20090803
  5. ISORDIL [Concomitant]
     Indication: DRUG USE FOR UNKNOWN INDICATION
     Route: 065
     Dates: end: 20090803

REACTIONS (6)
  - BODY TEMPERATURE INCREASED [None]
  - HYPOTENSION [None]
  - LEUKOPENIA [None]
  - PNEUMOCOCCAL SEPSIS [None]
  - PNEUMONIA [None]
  - THROMBOCYTOPENIA [None]
